FAERS Safety Report 10150483 (Version 2)
Quarter: 2014Q2

REPORT INFORMATION
  Report Type: Spontaneous
  Country: US (occurrence: US)
  Receive Date: 20140502
  Receipt Date: 20140523
  Transmission Date: 20141212
  Serious: Yes (Hospitalization)
  Sender: FDA-Public Use
  Company Number: US-BAYER-2014-062446

PATIENT
  Age: 52 Year
  Sex: Female

DRUGS (1)
  1. GADAVIST [Suspect]
     Indication: NUCLEAR MAGNETIC RESONANCE IMAGING
     Dosage: 6.8 ML, ONCE
     Dates: start: 20140308, end: 20140308

REACTIONS (8)
  - Wheezing [None]
  - Syncope [None]
  - Vision blurred [None]
  - Pruritus [None]
  - Flushing [None]
  - Dizziness [None]
  - Nausea [None]
  - Vomiting [None]
